FAERS Safety Report 4432298-8 (Version None)
Quarter: 2004Q3

REPORT INFORMATION
  Report Type: 
  Country: None (occurrence: None)
  Receive Date: 20040820
  Receipt Date: 20040810
  Transmission Date: 20050211
  Serious: Yes (Other)
  Sender: FDA-Public Use
  Company Number: 2004025311

PATIENT
  Age: 52 Year
  Sex: Female

DRUGS (4)
  1. LIPITOR [Suspect]
     Indication: DYSLIPIDAEMIA
     Dosage: 10 MG (10 MG, 1 IN 1 D), ORAL
     Route: 048
     Dates: start: 20030601, end: 20040501
  2. TRIFOLIUM PRATENSE L. (TRIFOLIUM PRATENSE L.) [Concomitant]
  3. ALL OTHER THERAPEUTIC PRODUCTS (ALL OTHER THERAPEUTIC PRODUCTS [Concomitant]
  4. BROMAZEPAM (BROMAZEPAM) [Concomitant]

REACTIONS (3)
  - MUSCLE ATROPHY [None]
  - PAIN [None]
  - TRANSAMINASES INCREASED [None]
